FAERS Safety Report 8785856 (Version 1)
Quarter: 2012Q4

REPORT INFORMATION
  Report Type: Report from Study
  Country: CA (occurrence: CA)
  Receive Date: 20120914
  Receipt Date: 20120914
  Transmission Date: 20130627
  Serious: Yes (Hospitalization, Other)
  Sender: FDA-Public Use
  Company Number: CA-ABBOTT-12P-028-0977818-00

PATIENT
  Sex: Female

DRUGS (2)
  1. HUMIRA [Suspect]
     Indication: CROHN^S DISEASE
     Route: 058
     Dates: start: 20110202, end: 201202
  2. HUMIRA [Suspect]
     Dosage: Lastest dose: 04 Sep 2012
     Route: 058
     Dates: start: 201202

REACTIONS (2)
  - Intestinal obstruction [Unknown]
  - Hypophagia [Recovered/Resolved]
